FAERS Safety Report 7244230-2 (Version None)
Quarter: 2011Q1

REPORT INFORMATION
  Report Type: 
  Country: None (occurrence: None)
  Receive Date: 20110119
  Receipt Date: 20110119
  Transmission Date: 20110831
  Serious: Yes (Other)
  Sender: FDA-Public Use
  Company Number: None

PATIENT
  Age: 10 Year
  Sex: Male
  Weight: 56.6996 kg

DRUGS (2)
  1. SINGULAIR [Suspect]
     Indication: HYPERSENSITIVITY
     Dosage: 5 MG 1X DAY PO
     Route: 048
     Dates: start: 20110103, end: 20110113
  2. SINGULAIR [Suspect]
     Indication: ASTHMA
     Dosage: 5 MG 1X DAY PO
     Route: 048
     Dates: start: 20110103, end: 20110113

REACTIONS (4)
  - AGGRESSION [None]
  - INJURY [None]
  - ABNORMAL BEHAVIOUR [None]
  - MOOD SWINGS [None]
